FAERS Safety Report 25682528 (Version 1)
Quarter: 2025Q3

REPORT INFORMATION
  Report Type: Spontaneous
  Country: GB (occurrence: GB)
  Receive Date: 20250814
  Receipt Date: 20250814
  Transmission Date: 20251020
  Serious: Yes (Other)
  Sender: TEVA
  Company Number: None

PATIENT
  Age: 63 Year
  Sex: Female
  Weight: 72 kg

DRUGS (6)
  1. LANSOPRAZOLE [Suspect]
     Active Substance: LANSOPRAZOLE
     Indication: Ill-defined disorder
     Dosage: TAKE ONE CAPSULE DAILY, 15 MG DAILY
     Route: 065
     Dates: start: 20250724
  2. PREDNISOLONE [Concomitant]
     Active Substance: PREDNISOLONE
     Indication: Ill-defined disorder
     Dosage: 6 TABLETS DAILY, 6 DOSAGE FORMS DAILY
     Dates: start: 20250806
  3. ARIPIPRAZOLE [Concomitant]
     Active Substance: ARIPIPRAZOLE
     Indication: Ill-defined disorder
     Dosage: ONE TO BE TAKEN MORNING AND NIGHT WEEK 4, 2 DOSAGE FORMS DAILY
     Dates: start: 20250709
  4. OLANZAPINE [Concomitant]
     Active Substance: OLANZAPINE
     Indication: Ill-defined disorder
     Dosage: ONE TO BE TAKEN DAILY AT NIGHT WEEK 4, 1 DOSAGE FORMS DAILY, DURATION?127 DAYS
     Dates: start: 20250312, end: 20250716
  5. MIRTAZAPINE [Concomitant]
     Active Substance: MIRTAZAPINE
     Indication: Ill-defined disorder
     Dosage: TAKE ONE AT NIGHT, 1 DOSAGE FORMS DAILY
     Dates: start: 20250312
  6. FEXOFENADINE [Concomitant]
     Active Substance: FEXOFENADINE HYDROCHLORIDE
     Indication: Ill-defined disorder
     Dosage: TAKE ONE DAILY
     Dates: start: 20250806

REACTIONS (2)
  - Lip swelling [Recovered/Resolved]
  - Rash [Unknown]
